FAERS Safety Report 13449882 (Version 1)
Quarter: 2017Q2

REPORT INFORMATION
  Report Type: Spontaneous
  Country: US (occurrence: US)
  Receive Date: 20170417
  Receipt Date: 20170417
  Transmission Date: 20170830
  Serious: No
  Sender: FDA-Public Use
  Company Number: US-BION-20160201

PATIENT
  Age: 49 Year
  Sex: Female
  Weight: 136.08 kg

DRUGS (1)
  1. ALEVE [Suspect]
     Active Substance: NAPROXEN SODIUM
     Indication: NEURALGIA
     Dosage: 3 DOSAGE FORMS DAILY
     Route: 048

REACTIONS (4)
  - Incorrect drug administration duration [Unknown]
  - Product use in unapproved indication [Unknown]
  - Inappropriate schedule of drug administration [Unknown]
  - Oral discomfort [Recovered/Resolved]

NARRATIVE: CASE EVENT DATE: 20160529
